FAERS Safety Report 6656028-4 (Version None)
Quarter: 2010Q1

REPORT INFORMATION
  Report Type: 
  Country: None (occurrence: None)
  Receive Date: 20100317
  Receipt Date: 20091222
  Transmission Date: 20100710
  Serious: No
  Sender: FDA-Public Use
  Company Number: DSA_42244_2009

PATIENT
  Sex: Female

DRUGS (2)
  1. XENAZINE [Suspect]
     Indication: HUNTINGTON'S CHOREA
     Dosage: 12.5 MG QD ORAL
     Route: 048
     Dates: start: 20090401
  2. CYMBALTA [Concomitant]

REACTIONS (2)
  - DEPRESSION [None]
  - SEDATION [None]
